FAERS Safety Report 25302652 (Version 1)
Quarter: 2025Q2

REPORT INFORMATION
  Report Type: Spontaneous
  Country: US (occurrence: US)
  Receive Date: 20250512
  Receipt Date: 20250512
  Transmission Date: 20250717
  Serious: No
  Sender: ELI LILLY AND COMPANY
  Company Number: US-ELI_LILLY_AND_COMPANY-US202505008686

PATIENT
  Age: 83 Year

DRUGS (1)
  1. HUMULIN N [Suspect]
     Active Substance: INSULIN HUMAN
     Indication: Product used for unknown indication
     Route: 065

REACTIONS (5)
  - Mental impairment [Unknown]
  - Blood glucose increased [Unknown]
  - Hypoacusis [Unknown]
  - Anxiety [Unknown]
  - Incorrect dose administered [Unknown]
